FAERS Safety Report 7050540-4 (Version None)
Quarter: 2010Q4

REPORT INFORMATION
  Report Type: 
  Country: None (occurrence: None)
  Receive Date: 20101018
  Receipt Date: 20101007
  Transmission Date: 20110411
  Serious: Yes (Death)
  Sender: FDA-Public Use
  Company Number: US-PFIZER INC-2010127615

PATIENT
  Sex: Male

DRUGS (1)
  1. SUTENT [Suspect]
     Indication: GASTRIC CANCER
     Dosage: 50 MG, 1X/DAY, 28 DAYS ON/14 DAYS OFF

REACTIONS (1)
  - DEATH [None]
